FAERS Safety Report 18817709 (Version 1)
Quarter: 2021Q1

REPORT INFORMATION
  Report Type: Spontaneous
  Country: TN (occurrence: TN)
  Receive Date: 20210201
  Receipt Date: 20210201
  Transmission Date: 20210419
  Serious: Yes (Other)
  Sender: FDA-Public Use
  Company Number: TN-SEBELA IRELAND LIMITED-2021SEB00006

PATIENT
  Age: 31 Year
  Sex: Female

DRUGS (2)
  1. AZATHIOPRINE. [Suspect]
     Active Substance: AZATHIOPRINE
     Indication: CROHN^S DISEASE
     Route: 065
  2. 5ASA [Concomitant]
     Active Substance: MESALAMINE
     Route: 065

REACTIONS (2)
  - T-cell lymphoma [Recovered/Resolved]
  - Anastomotic complication [Recovered/Resolved]

NARRATIVE: CASE EVENT DATE: 201912
